FAERS Safety Report 4865928-7 (Version None)
Quarter: 2005Q4

REPORT INFORMATION
  Report Type: 
  Country: None (occurrence: None)
  Receive Date: 20051226
  Receipt Date: 20051213
  Transmission Date: 20060501
  Serious: Yes (Other)
  Sender: FDA-Public Use
  Company Number: PHRM2005FR03289

PATIENT
  Age: 46 Year
  Sex: Female

DRUGS (1)
  1. COTAREG [Suspect]
     Indication: HYPERTENSION
     Dosage: 1 DF, QD
     Route: 048
     Dates: end: 20051101

REACTIONS (3)
  - COUGH [None]
  - PERTUSSIS [None]
  - PERTUSSIS IDENTIFICATION TEST POSITIVE [None]
